FAERS Safety Report 6645501-0 (Version None)
Quarter: 2010Q1

REPORT INFORMATION
  Report Type: 
  Country: None (occurrence: None)
  Receive Date: 20100319
  Receipt Date: 20100319
  Transmission Date: 20100710
  Serious: Yes (Other)
  Sender: FDA-Public Use
  Company Number: None

PATIENT
  Age: 47 Year
  Sex: Male
  Weight: 65.7716 kg

DRUGS (1)
  1. ROPINIROLE [Suspect]
     Indication: RESTLESS LEGS SYNDROME
     Dosage: 1 AT BED  BEDTIME PO
     Route: 048
     Dates: start: 20090701, end: 20100317

REACTIONS (3)
  - ABNORMAL BEHAVIOUR [None]
  - COMPULSIONS [None]
  - GAMBLING [None]
